FAERS Safety Report 6845926-4 (Version None)
Quarter: 2010Q3

REPORT INFORMATION
  Report Type: 
  Country: None (occurrence: None)
  Receive Date: 20100715
  Receipt Date: 20070831
  Transmission Date: 20110219
  Serious: No
  Sender: FDA-Public Use
  Company Number: US-PFIZER INC-2007073916

PATIENT
  Sex: Female
  Weight: 59 kg

DRUGS (6)
  1. CHANTIX [Suspect]
     Indication: SMOKING CESSATION THERAPY
     Dates: start: 20070830
  2. AMBIEN [Concomitant]
  3. NAVANE [Concomitant]
     Indication: MENTAL DISORDER
  4. MONTELUKAST SODIUM [Concomitant]
  5. ATIVAN [Concomitant]
  6. ALL OTHER THERAPEUTIC PRODUCTS [Concomitant]

REACTIONS (1)
  - HEADACHE [None]
